FAERS Safety Report 23861447 (Version 1)
Quarter: 2024Q2

REPORT INFORMATION
  Report Type: Other
  Country: CN (occurrence: CN)
  Receive Date: 20240516
  Receipt Date: 20240516
  Transmission Date: 20240715
  Serious: Yes (Hospitalization, Other)
  Sender: FDA-Public Use
  Company Number: CN-DEXPHARM-2024-1208

PATIENT
  Age: 29 Year
  Sex: Male

DRUGS (6)
  1. LEVETIRACETAM [Suspect]
     Active Substance: LEVETIRACETAM
     Indication: Mitochondrial encephalomyopathy
     Dosage: LONG-TERM USE.
  2. VITAMIN B2 [Suspect]
     Active Substance: RIBOFLAVIN
     Indication: Mitochondrial encephalomyopathy
     Dosage: LONG-TERM USE.
  3. VITAMIN E [Suspect]
     Active Substance: .ALPHA.-TOCOPHEROL
     Indication: Mitochondrial encephalomyopathy
     Dosage: LONG-TERM USE.
  4. METHYLCOBALAMIN [Suspect]
     Active Substance: METHYLCOBALAMIN
     Indication: Mitochondrial encephalomyopathy
     Dosage: LONG-TERM USE.
  5. IDEBENONE [Suspect]
     Active Substance: IDEBENONE
     Indication: Mitochondrial encephalomyopathy
     Dosage: LONG-TERM USE.
  6. LORAZEPAM [Suspect]
     Active Substance: LORAZEPAM
     Indication: Mitochondrial encephalomyopathy
     Dosage: LONG-TERM USE.

REACTIONS (1)
  - Cataract nuclear [Recovered/Resolved]
